FAERS Safety Report 6891239-4 (Version None)
Quarter: 2010Q3

REPORT INFORMATION
  Report Type: 
  Country: None (occurrence: None)
  Receive Date: 20100731
  Receipt Date: 20090710
  Transmission Date: 20110219
  Serious: No
  Sender: FDA-Public Use
  Company Number: US-PFIZER INC-2009206647

PATIENT
  Sex: Female
  Weight: 56.69 kg

DRUGS (6)
  1. LIPITOR [Suspect]
     Indication: BLOOD CHOLESTEROL INCREASED
     Dosage: 10 MG, 1X/DAY
     Dates: start: 20090406, end: 20090425
  2. CELEBREX [Suspect]
     Indication: ARTHRITIS
     Dosage: 20 MG, AS NEEDED
     Dates: end: 20090426
  3. EVISTA [Concomitant]
     Dosage: UNK
  4. ATENOLOL [Concomitant]
     Dosage: UNK
  5. HYDROCHLOROTHIAZIDE [Concomitant]
     Dosage: UNK
  6. XALATAN [Concomitant]
     Indication: GLAUCOMA
     Dosage: UNK

REACTIONS (5)
  - ARTHRALGIA [None]
  - ERYTHEMA [None]
  - HAIR COLOUR CHANGES [None]
  - MYALGIA [None]
  - PYREXIA [None]
